FAERS Safety Report 7146244 (Version 2)
Quarter: 2020Q3

REPORT INFORMATION
  Report Type: Report from Study
  Country: US (occurrence: US)
  Receive Date: 20091012
  Receipt Date: 20091116
  Transmission Date: 20201105
  Serious: Yes (Hospitalization)
  Sender: FDA-Public Use
  Company Number: US-ROCHE-659852

PATIENT
  Age: 48 Year
  Sex: Female
  Weight: 106 kg

DRUGS (4)
  1. LEVOXYL [Concomitant]
     Active Substance: LEVOTHYROXINE SODIUM
  2. COUMADIN [Concomitant]
     Active Substance: WARFARIN SODIUM
  3. IBANDRONIC ACID. [Suspect]
     Active Substance: IBANDRONIC ACID
     Dosage: THE PATIENT HAD RECEIVED THREE COURSES. LAST ADMINISTERED DATE: 28 SEP 2009. DOSE: 50 MG BY MOUTH.
     Route: 048
     Dates: start: 20090629
  4. EFFEXOR [Concomitant]
     Active Substance: VENLAFAXINE HYDROCHLORIDE

REACTIONS (2)
  - Chest pain [Unknown]
  - Exfoliative rash [Recovered/Resolved]

NARRATIVE: CASE EVENT DATE: 20090912
